FAERS Safety Report 25943531 (Version 1)
Quarter: 2025Q4

REPORT INFORMATION
  Report Type: Spontaneous
  Country: US (occurrence: US)
  Receive Date: 20251021
  Receipt Date: 20251021
  Transmission Date: 20260117
  Serious: No
  Sender: CHATTEM
  Company Number: US-OPELLA-2025OHG030626

PATIENT
  Age: 81 Year
  Sex: Female

DRUGS (1)
  1. XYZAL [Suspect]
     Active Substance: LEVOCETIRIZINE DIHYDROCHLORIDE
     Indication: Product used for unknown indication
     Route: 065
     Dates: start: 20251016

REACTIONS (3)
  - Choking sensation [Unknown]
  - Secretion discharge [Unknown]
  - Condition aggravated [Unknown]

NARRATIVE: CASE EVENT DATE: 20251017
